FAERS Safety Report 18947665 (Version 1)
Quarter: 2021Q1

REPORT INFORMATION
  Report Type: Spontaneous
  Country: TG (occurrence: TG)
  Receive Date: 20210227
  Receipt Date: 20210227
  Transmission Date: 20210420
  Serious: Yes (Death, Other)
  Sender: FDA-Public Use
  Company Number: TG-BRISTOL-MYERS SQUIBB COMPANY-BMS-2021-018735

PATIENT
  Sex: Female

DRUGS (1)
  1. SPRYCEL [Suspect]
     Active Substance: DASATINIB
     Indication: CHRONIC MYELOID LEUKAEMIA
     Dosage: 100 MILLIGRAM (2^50MILLIGRAM)
     Route: 065

REACTIONS (1)
  - Death [Fatal]
